FAERS Safety Report 13375737 (Version 1)
Quarter: 2017Q1

REPORT INFORMATION
  Report Type: Spontaneous
  Country: US (occurrence: US)
  Receive Date: 20170328
  Receipt Date: 20170328
  Transmission Date: 20170429
  Serious: Yes (Other)
  Sender: FDA-Public Use
  Company Number: US-ACCORD-049536

PATIENT
  Age: 57 Year
  Sex: Female

DRUGS (4)
  1. TACROLIMUS. [Suspect]
     Active Substance: TACROLIMUS
     Indication: STEM CELL TRANSPLANT
     Dosage: SYSTEMIC
  2. BUDESONIDE. [Suspect]
     Active Substance: BUDESONIDE
     Indication: STEM CELL TRANSPLANT
  3. BECLOMETASONE [Suspect]
     Active Substance: BECLOMETHASONE DIPROPIONATE
     Indication: STEM CELL TRANSPLANT
  4. PREDNISONE. [Suspect]
     Active Substance: PREDNISONE
     Indication: STEM CELL TRANSPLANT

REACTIONS (2)
  - Skin infection [Recovered/Resolved]
  - Mycobacterial infection [Recovered/Resolved]
